FAERS Safety Report 7735678-8 (Version None)
Quarter: 2011Q3

REPORT INFORMATION
  Report Type: 
  Country: None (occurrence: None)
  Receive Date: 20110907
  Receipt Date: 20110824
  Transmission Date: 20111222
  Serious: Yes (Hospitalization)
  Sender: FDA-Public Use
  Company Number: JP-MYLANLABS-2011S1017956

PATIENT
  Age: 9 Decade
  Sex: Female
  Weight: 45 kg

DRUGS (4)
  1. LOXOPROFEN [Suspect]
     Indication: OSTEOARTHRITIS
     Dosage: 180 MG/DAY
     Route: 048
     Dates: start: 20020101, end: 20090101
  2. DICLOFENAC SODIUM [Suspect]
     Indication: BACK PAIN
     Dosage: 50 MG/DAY
     Route: 048
     Dates: start: 20020101, end: 20090101
  3. LOXOPROFEN [Suspect]
     Indication: BACK PAIN
     Dosage: 180 MG/DAY
     Route: 048
     Dates: start: 20020101, end: 20090101
  4. DICLOFENAC SODIUM [Suspect]
     Indication: OSTEOARTHRITIS
     Dosage: 50 MG/DAY
     Route: 048
     Dates: start: 20020101, end: 20090101

REACTIONS (2)
  - JEJUNAL ULCER [None]
  - ENTERITIS [None]
